FAERS Safety Report 8846780 (Version 1)
Quarter: 2012Q4

REPORT INFORMATION
  Report Type: Spontaneous
  Country: US (occurrence: None)
  Receive Date: 20121018
  Receipt Date: 20121018
  Transmission Date: 20130627
  Serious: Yes (Life-Threatening, Hospitalization, Other)
  Sender: FDA-Public Use
  Company Number: None

PATIENT
  Age: 28 Year
  Sex: Female
  Weight: 48.99 kg

DRUGS (1)
  1. KENALOG [Suspect]
     Indication: JOINT DISORDER
     Dosage: 40 mg injected in knee joint once ; 40 mg injected in hip joint once
     Dates: start: 20120705, end: 20120705

REACTIONS (18)
  - Injection site pain [None]
  - Dizziness [None]
  - Feeling jittery [None]
  - Weight decreased [None]
  - Diarrhoea [None]
  - Insomnia [None]
  - Panic attack [None]
  - Pancreatitis [None]
  - Blood potassium decreased [None]
  - Electrolyte depletion [None]
  - Hepatic enzyme increased [None]
  - Dehydration [None]
  - Chest pain [None]
  - Glucose tolerance impaired [None]
  - Carbohydrate intolerance [None]
  - Fatigue [None]
  - Depression [None]
  - Post-traumatic stress disorder [None]
